FAERS Safety Report 5913121-9 (Version None)
Quarter: 2008Q4

REPORT INFORMATION
  Report Type: 
  Country: None (occurrence: None)
  Receive Date: 20081002
  Receipt Date: 20080924
  Transmission Date: 20090506
  Serious: Yes (Death, Other)
  Sender: FDA-Public Use
  Company Number: CHPA2008US16241

PATIENT
  Age: 3 Month
  Sex: Male

DRUGS (4)
  1. DEXTROMETHORPHAN HYDROBROMIDE [Suspect]
  2. PSEUDOEPHEDRINE HCL [Suspect]
  3. ACETAMINOPHEN [Suspect]
  4. DOXYLAMINE [Suspect]

REACTIONS (3)
  - DRUG INTERACTION [None]
  - ENCEPHALOPATHY [None]
  - OVERDOSE [None]
